FAERS Safety Report 14971283 (Version 1)
Quarter: 2018Q2

REPORT INFORMATION
  Report Type: Spontaneous
  Country: US (occurrence: US)
  Receive Date: 20180514
  Receipt Date: 20180514
  Transmission Date: 20180711
  Serious: Yes (Hospitalization)
  Sender: FDA-Public Use
  Company Number: None

PATIENT
  Age: 10 Year
  Sex: Female

DRUGS (7)
  1. VITAMIN D3 [Concomitant]
     Active Substance: CHOLECALCIFEROL
  2. PROBIOTIC [Concomitant]
     Active Substance: PROBIOTICS NOS
  3. NAPROXEN. [Concomitant]
     Active Substance: NAPROXEN
  4. GAMMAGARD [Suspect]
     Active Substance: HUMAN IMMUNOGLOBULIN G
     Indication: ENCEPHALOMYELITIS
     Dosage: ?          OTHER FREQUENCY:MONTHLY;?
     Route: 042
  5. RANITIDINE. [Concomitant]
     Active Substance: RANITIDINE
  6. GAMMAGARD [Suspect]
     Active Substance: HUMAN IMMUNOGLOBULIN G
     Indication: ENCEPHALITIS
     Dosage: ?          OTHER FREQUENCY:MONTHLY;?
     Route: 042
  7. AMOX/K CLAV [Concomitant]
     Active Substance: AMOXICILLIN\CLAVULANATE POTASSIUM

REACTIONS (2)
  - Condition aggravated [None]
  - Encephalitis autoimmune [None]

NARRATIVE: CASE EVENT DATE: 20180510
